FAERS Safety Report 14342871 (Version 2)
Quarter: 2018Q1

REPORT INFORMATION
  Report Type: Report from Study
  Country: IT (occurrence: IT)
  Receive Date: 20180102
  Receipt Date: 20180319
  Transmission Date: 20180509
  Serious: Yes (Hospitalization)
  Sender: FDA-Public Use
  Company Number: IT-PFIZER INC-2017551988

PATIENT
  Age: 73 Year
  Sex: Male
  Weight: 76 kg

DRUGS (28)
  1. GEMCITABINE HYDROCHLORIDE. [Suspect]
     Active Substance: GEMCITABINE HYDROCHLORIDE
     Dosage: 1950 MG, UNK
     Route: 042
     Dates: start: 20170630
  2. GEMCITABINE HYDROCHLORIDE. [Suspect]
     Active Substance: GEMCITABINE HYDROCHLORIDE
     Dosage: 1950 MG, UNK
     Route: 042
     Dates: start: 20170721
  3. RAMUCIRUMAB [Suspect]
     Active Substance: RAMUCIRUMAB
     Indication: PLEURAL MESOTHELIOMA MALIGNANT
     Dosage: 780 MG, UNK
     Route: 042
     Dates: start: 20170904
  4. MEDROL [Concomitant]
     Active Substance: METHYLPREDNISOLONE
     Indication: DYSPNOEA
     Dosage: 16 MG, UNK
     Route: 048
     Dates: start: 20170729
  5. GEMCITABINE HYDROCHLORIDE. [Suspect]
     Active Substance: GEMCITABINE HYDROCHLORIDE
     Dosage: 1950 MG, UNK
     Route: 042
     Dates: start: 20171108
  6. GEMCITABINE HYDROCHLORIDE. [Suspect]
     Active Substance: GEMCITABINE HYDROCHLORIDE
     Dosage: 1950 MG, UNK
     Route: 042
     Dates: start: 20170818
  7. GEMCITABINE HYDROCHLORIDE. [Suspect]
     Active Substance: GEMCITABINE HYDROCHLORIDE
     Dosage: UNK
  8. RAMUCIRUMAB [Suspect]
     Active Substance: RAMUCIRUMAB
     Dosage: UNK
  9. GEMCITABINE HYDROCHLORIDE. [Suspect]
     Active Substance: GEMCITABINE HYDROCHLORIDE
     Dosage: 1950 MG, UNK
     Route: 042
     Dates: start: 20170707
  10. RAMUCIRUMAB [Suspect]
     Active Substance: RAMUCIRUMAB
     Dosage: 780 MG, UNK
     Route: 042
     Dates: start: 20170928
  11. RAMUCIRUMAB [Suspect]
     Active Substance: RAMUCIRUMAB
     Dosage: 780 MG, UNK
     Route: 042
     Dates: start: 20171018
  12. RAMUCIRUMAB [Suspect]
     Active Substance: RAMUCIRUMAB
     Dosage: 780 MG, UNK
     Route: 042
     Dates: start: 20171108
  13. GEMCITABINE HYDROCHLORIDE. [Suspect]
     Active Substance: GEMCITABINE HYDROCHLORIDE
     Dosage: 1950 MG, UNK
     Route: 042
     Dates: start: 20171018
  14. GEMCITABINE HYDROCHLORIDE. [Suspect]
     Active Substance: GEMCITABINE HYDROCHLORIDE
     Dosage: 1950 MG, UNK
     Route: 042
     Dates: start: 20170809
  15. RAMUCIRUMAB [Suspect]
     Active Substance: RAMUCIRUMAB
     Dosage: 780 MG, UNK
     Route: 042
     Dates: start: 20170721
  16. TACHIPIRINA [Concomitant]
     Active Substance: ACETAMINOPHEN
     Indication: NASOPHARYNGITIS
     Dosage: UNK
     Dates: start: 20171110, end: 20171110
  17. RAMUCIRUMAB [Suspect]
     Active Substance: RAMUCIRUMAB
     Dosage: 780 MG, UNK
     Route: 042
     Dates: start: 20170630
  18. GEMCITABINE HYDROCHLORIDE. [Suspect]
     Active Substance: GEMCITABINE HYDROCHLORIDE
     Indication: PLEURAL MESOTHELIOMA MALIGNANT
     Dosage: 1950 MG, UNK
     Route: 042
     Dates: start: 20171025
  19. GEMCITABINE HYDROCHLORIDE. [Suspect]
     Active Substance: GEMCITABINE HYDROCHLORIDE
     Dosage: 1950 MG, UNK
     Route: 042
     Dates: start: 20170728
  20. GEMCITABINE HYDROCHLORIDE. [Suspect]
     Active Substance: GEMCITABINE HYDROCHLORIDE
     Dosage: 1950 MG, UNK
     Route: 042
     Dates: start: 20170609
  21. GEMCITABINE HYDROCHLORIDE. [Suspect]
     Active Substance: GEMCITABINE HYDROCHLORIDE
     Dosage: 1950 MG, UNK
     Route: 042
     Dates: start: 20170616
  22. GEMCITABINE HYDROCHLORIDE. [Suspect]
     Active Substance: GEMCITABINE HYDROCHLORIDE
     Dosage: 1950 MG, UNK
     Route: 042
     Dates: start: 20170904
  23. GEMCITABINE HYDROCHLORIDE. [Suspect]
     Active Substance: GEMCITABINE HYDROCHLORIDE
     Dosage: 1950 MG, UNK
     Route: 042
     Dates: start: 20171115, end: 20171129
  24. GEMCITABINE HYDROCHLORIDE. [Suspect]
     Active Substance: GEMCITABINE HYDROCHLORIDE
     Dosage: 1950 MG, UNK
     Route: 042
     Dates: start: 20170912
  25. GEMCITABINE HYDROCHLORIDE. [Suspect]
     Active Substance: GEMCITABINE HYDROCHLORIDE
     Dosage: 1950 MG, UNK
     Route: 042
     Dates: start: 20170928
  26. RAMUCIRUMAB [Suspect]
     Active Substance: RAMUCIRUMAB
     Dosage: 780 MG, UNK
     Route: 042
     Dates: start: 20170809
  27. RAMUCIRUMAB [Suspect]
     Active Substance: RAMUCIRUMAB
     Dosage: 780 MG, UNK
     Route: 042
     Dates: start: 20170609
  28. TACHIPIRINA [Concomitant]
     Active Substance: ACETAMINOPHEN
     Indication: CHILLS
     Dosage: 1000 MG, UNK
     Route: 048
     Dates: start: 20170608, end: 20170608

REACTIONS (3)
  - Pulmonary embolism [Recovering/Resolving]
  - Chest pain [Unknown]
  - Dyspnoea [Unknown]

NARRATIVE: CASE EVENT DATE: 20171129
